FAERS Safety Report 4404283-3 (Version None)
Quarter: 2004Q3

REPORT INFORMATION
  Report Type: 
  Country: None (occurrence: None)
  Receive Date: 20040721
  Receipt Date: 20040721
  Transmission Date: 20050211
  Serious: Yes (Hospitalization)
  Sender: FDA-Public Use
  Company Number: None

PATIENT
  Age: 55 Year
  Sex: Male
  Weight: 181.3 kg

DRUGS (17)
  1. COUMADIN [Suspect]
     Dosage: 7.5 MG ORAL
     Route: 048
  2. ENOXAPARIN [Concomitant]
  3. BACITRACIN [Concomitant]
  4. FUROSEMIDE [Concomitant]
  5. ACETAMINOPHEN AND HYDROCODONE BITARTRATE [Concomitant]
  6. TRIAMCINOLONE ACETONIDE [Concomitant]
  7. KETOCONAZOLE [Concomitant]
  8. PAROXETINE HCL [Concomitant]
  9. GLYBURIDE/METFORMIN [Concomitant]
  10. TERAZOSIN HCL [Concomitant]
  11. ROSGLITAZONE [Concomitant]
  12. NORTRIPTYLINE HCL [Concomitant]
  13. MULTI-VITAMIN [Concomitant]
  14. ENALAPRIL MALEATE [Concomitant]
  15. ATENOLOL [Concomitant]
  16. ALBUTEROL/IPRATROPIUM [Concomitant]
  17. PIPERACILLIN/TAZOBACTAM [Concomitant]

REACTIONS (2)
  - HAEMORRHAGE [None]
  - INTERNATIONAL NORMALISED RATIO INCREASED [None]
